FAERS Safety Report 15377940 (Version 1)
Quarter: 2018Q3

REPORT INFORMATION
  Report Type: Report from Study
  Country: DK (occurrence: DK)
  Receive Date: 20180913
  Receipt Date: 20180913
  Transmission Date: 20181010
  Serious: Yes (Other)
  Sender: FDA-Public Use
  Company Number: DK-MYLANLABS-2018M1067094

PATIENT
  Age: 50 Year
  Sex: Female

DRUGS (6)
  1. PREGABALIN. [Concomitant]
     Active Substance: PREGABALIN
     Indication: PARTIAL SEIZURES
     Route: 065
  2. PERAMPANEL [Interacting]
     Active Substance: PERAMPANEL
     Dosage: 6 MG, QD
     Route: 065
  3. CLOBAZAM [Concomitant]
     Active Substance: CLOBAZAM
     Indication: PARTIAL SEIZURES
     Route: 065
  4. LEVETIRACETAM. [Suspect]
     Active Substance: LEVETIRACETAM
     Indication: PARTIAL SEIZURES
     Dosage: UNK
     Route: 065
  5. LAMOTRIGINE. [Concomitant]
     Active Substance: LAMOTRIGINE
     Indication: PARTIAL SEIZURES
     Route: 065
  6. PERAMPANEL [Interacting]
     Active Substance: PERAMPANEL
     Indication: PARTIAL SEIZURES
     Dosage: 2 MG, QD/INITIAL DOSE OF 2MG ONCE DAILY AT BEDTIME; UPTITRATED BY 2MG EVERYTIME TO MAXIMUM DOSE OF 6
     Route: 065

REACTIONS (6)
  - Aggression [Recovering/Resolving]
  - Disturbance in attention [Recovering/Resolving]
  - Drug interaction [Recovering/Resolving]
  - Fatigue [Recovering/Resolving]
  - Dizziness [Recovering/Resolving]
  - Mood altered [Recovering/Resolving]
